FAERS Safety Report 10229693 (Version 2)
Quarter: 2014Q2

REPORT INFORMATION
  Report Type: Spontaneous
  Country: JP (occurrence: JP)
  Receive Date: 20140611
  Receipt Date: 20140611
  Transmission Date: 20141212
  Serious: Yes (Hospitalization)
  Sender: FDA-Public Use
  Company Number: JP-TAKEDA-0239746

PATIENT
  Age: 60 Year
  Sex: Male

DRUGS (4)
  1. TACHOSIL [Suspect]
     Indication: METASTASES TO LIVER
     Dosage: 2 DF, UNK
     Route: 003
     Dates: start: 20130326
  2. LOXONIN [Concomitant]
     Indication: PROPHYLAXIS
     Dosage: 60 MG, PRN
     Dates: start: 20130330, end: 20130401
  3. MUCOSTA [Concomitant]
     Indication: PROPHYLAXIS
     Dosage: 100 MG, PRN
     Dates: start: 20130330, end: 20130401
  4. MUCOSOLVAN [Concomitant]
     Indication: PROPHYLAXIS
     Dosage: 15 MG, BID

REACTIONS (3)
  - Abdominal abscess [Recovered/Resolved]
  - Anaemia [Recovering/Resolving]
  - Hepatic function abnormal [Recovering/Resolving]
